FAERS Safety Report 5124665-4 (Version None)
Quarter: 2006Q4

REPORT INFORMATION
  Report Type: 
  Country: None (occurrence: None)
  Receive Date: 20061011
  Receipt Date: 20060908
  Transmission Date: 20070319
  Serious: Yes (Other)
  Sender: FDA-Public Use
  Company Number: PHMT2006CA01790

PATIENT
  Age: 62 Year
  Sex: Female

DRUGS (2)
  1. DIOVAN T30230+TAB+HY [Suspect]
     Indication: HYPERTENSION
     Dosage: 160 MG  QD
     Route: 048
     Dates: start: 20050531, end: 20060902
  2. CRESTOR [Concomitant]
     Dosage: 5-10 MG QD

REACTIONS (2)
  - BLOOD CREATINE PHOSPHOKINASE INCREASED [None]
  - MYALGIA [None]
